FAERS Safety Report 9178760 (Version 1)
Quarter: 2013Q1

REPORT INFORMATION
  Report Type: Other
  Country: US (occurrence: US)
  Receive Date: 20130321
  Receipt Date: 20130321
  Transmission Date: 20140127
  Serious: Yes (Other)
  Sender: FDA-Public Use
  Company Number: US-BRISTOL-MYERS SQUIBB COMPANY-17468281

PATIENT
  Age: 68 Year
  Sex: Male

DRUGS (1)
  1. TRIAMCINOLONE ACE INJ [Suspect]
     Indication: KELOID SCAR
     Dosage: 1DF: 0.5-1.0CC, 6MG/CC
     Route: 058

REACTIONS (1)
  - Melanoma recurrent [Unknown]
